FAERS Safety Report 18467122 (Version 1)
Quarter: 2020Q4

REPORT INFORMATION
  Report Type: Spontaneous
  Country: US (occurrence: US)
  Receive Date: 20201104
  Receipt Date: 20201104
  Transmission Date: 20210114
  Serious: Yes (Hospitalization)
  Sender: FDA-Public Use
  Company Number: None

PATIENT
  Age: 35 Year
  Sex: Male
  Weight: 119 kg

DRUGS (2)
  1. SERTRALINE (SERTRALINE HCL 100MG TAB) [Suspect]
     Active Substance: SERTRALINE HYDROCHLORIDE
     Indication: DEPRESSION
  2. ALPRAZOLAM (ALPRAZOLAM 0.5MG TAB) [Suspect]
     Active Substance: ALPRAZOLAM
     Indication: DEPRESSION

REACTIONS (3)
  - Depression [None]
  - Alcohol abuse [None]
  - Suicide attempt [None]

NARRATIVE: CASE EVENT DATE: 20200619
